FAERS Safety Report 20894415 (Version 1)
Quarter: 2022Q2

REPORT INFORMATION
  Report Type: Spontaneous
  Country: CN (occurrence: CN)
  Receive Date: 20220531
  Receipt Date: 20220531
  Transmission Date: 20220720
  Serious: Yes (Hospitalization)
  Sender: FDA-Public Use
  Company Number: None

PATIENT
  Age: 41 Year
  Sex: Male
  Weight: 60 kg

DRUGS (11)
  1. CYCLOPHOSPHAMIDE [Suspect]
     Active Substance: CYCLOPHOSPHAMIDE
     Indication: Osteosarcoma
     Dosage: CYCLO + SODIUM CHLORIDE (1200MG/M2)
     Route: 041
     Dates: start: 20220426, end: 20220426
  2. CYCLOPHOSPHAMIDE [Suspect]
     Active Substance: CYCLOPHOSPHAMIDE
     Dosage: DOSE RE-INTRODUCED
     Route: 041
  3. MESNA [Suspect]
     Active Substance: MESNA
     Indication: Osteosarcoma
     Dosage: 400 MG, Q21D D0, 4, 8 (240MG/M2)
     Route: 042
  4. SODIUM CHLORIDE [Suspect]
     Active Substance: SODIUM CHLORIDE
     Indication: Medication dilution
     Dosage: 200 ML ONCE DAILY, CYCLOPHOSPHAMIDE (2 G) + SODIUM CHLORIDE (200 ML)
     Route: 041
     Dates: start: 20220426, end: 20220426
  5. SODIUM CHLORIDE [Suspect]
     Active Substance: SODIUM CHLORIDE
     Dosage: DOSE RE-INTRODUCED CYCLOPHOSPHAMIDE + SODIUM CHLORIDE
     Route: 041
  6. SODIUM CHLORIDE [Suspect]
     Active Substance: SODIUM CHLORIDE
     Dosage: EPIRUBICIN (50 MG) + SODIUM CHLORIDE (100 ML)
     Route: 041
     Dates: start: 20220426, end: 20220426
  7. SODIUM CHLORIDE [Suspect]
     Active Substance: SODIUM CHLORIDE
     Dosage: DOSE RE-INTRODUCED EPIRUBICIN + SODIUM CHLORIDE
     Route: 041
  8. EPIRUBICIN HYDROCHLORIDE [Suspect]
     Active Substance: EPIRUBICIN HYDROCHLORIDE
     Indication: Osteosarcoma
     Dosage: D1,2 (60 MG/M2), EPIRUBICIN+ SODIUM CHLORIDE
     Route: 041
     Dates: start: 20220426, end: 20220426
  9. EPIRUBICIN HYDROCHLORIDE [Suspect]
     Active Substance: EPIRUBICIN HYDROCHLORIDE
     Dosage: DOSE RE-INTRODUCED
     Route: 041
  10. VINCRISTINE SULFATE [Suspect]
     Active Substance: VINCRISTINE SULFATE
     Indication: Bone sarcoma
     Dosage: D1 (1.5 MG/M2)
     Route: 042
     Dates: start: 20220421, end: 20220421
  11. VINCRISTINE SULFATE [Suspect]
     Active Substance: VINCRISTINE SULFATE
     Dosage: DOSE RE-INTRODUCED
     Route: 042

REACTIONS (2)
  - White blood cell count decreased [Recovering/Resolving]
  - Neutrophil count decreased [Recovering/Resolving]

NARRATIVE: CASE EVENT DATE: 20220504
